FAERS Safety Report 10133956 (Version 1)
Quarter: 2014Q2

REPORT INFORMATION
  Report Type: Spontaneous
  Country: US (occurrence: US)
  Receive Date: 20140428
  Receipt Date: 20140428
  Transmission Date: 20141212
  Serious: No
  Sender: FDA-Public Use
  Company Number: US-ASTELLAS-2014US003658

PATIENT
  Age: 53 Year
  Sex: Female

DRUGS (1)
  1. LEXISCAN [Suspect]
     Indication: PRODUCT USED FOR UNKNOWN INDICATION
     Route: 042
     Dates: start: 20140402, end: 20140402

REACTIONS (5)
  - Pain [Unknown]
  - Skin discolouration [Unknown]
  - Eye swelling [Unknown]
  - Condition aggravated [Unknown]
  - Headache [Unknown]
